FAERS Safety Report 12921312 (Version 1)
Quarter: 2016Q4

REPORT INFORMATION
  Report Type: Spontaneous
  Country: CH (occurrence: KR)
  Receive Date: 20161107
  Receipt Date: 20161107
  Transmission Date: 20170207
  Serious: Yes (Other)
  Sender: FDA-Public Use
  Company Number: CH-LPDUSPRD-20160971

PATIENT
  Age: 55 Year
  Sex: Male

DRUGS (1)
  1. FERINJECT [Suspect]
     Active Substance: FERRIC CARBOXYMALTOSE
     Dosage: 500 MG
     Route: 041
     Dates: start: 20160831, end: 20160831

REACTIONS (3)
  - Off label use [Unknown]
  - Anaphylactic reaction [Unknown]
  - Bradycardia [Unknown]

NARRATIVE: CASE EVENT DATE: 20160831
